FAERS Safety Report 4392475-1 (Version None)
Quarter: 2004Q3

REPORT INFORMATION
  Report Type: 
  Country: None (occurrence: None)
  Receive Date: 20040702
  Receipt Date: 20040623
  Transmission Date: 20050211
  Serious: Yes (Death)
  Sender: FDA-Public Use
  Company Number: US-JNJFOC-20040606401

PATIENT
  Age: 30 Year
  Sex: Male

DRUGS (1)
  1. CYCLOBENZAPRINE HYDROCHLORIDE [Suspect]
     Indication: BACK PAIN

REACTIONS (4)
  - AGE INDETERMINATE MYOCARDIAL INFARCTION [None]
  - ARRHYTHMIA [None]
  - TORSADE DE POINTES [None]
  - VENTRICULAR TACHYCARDIA [None]
